FAERS Safety Report 16723061 (Version 1)
Quarter: 2019Q3

REPORT INFORMATION
  Report Type: Report from Study
  Country: CN (occurrence: CN)
  Receive Date: 20190821
  Receipt Date: 20190821
  Transmission Date: 20191005
  Serious: Yes (Other)
  Sender: FDA-Public Use
  Company Number: CN-ROCHE-2375546

PATIENT

DRUGS (7)
  1. PACLITAXEL. [Suspect]
     Active Substance: PACLITAXEL
     Indication: HER-2 POSITIVE BREAST CANCER
     Dosage: 3 WEEKS AS A CYCLE, CONTINUOUS FOR 6 CYCLES
     Route: 042
  2. DIPHENHYDRAMINE. [Concomitant]
     Active Substance: DIPHENHYDRAMINE
     Indication: HYPERSENSITIVITY
  3. TRASTUZUMAB. [Suspect]
     Active Substance: TRASTUZUMAB
     Indication: HER-2 POSITIVE BREAST CANCER
     Dosage: FISRT DOSE 4MG/KG, AFTER EACH DOSE 2MG/KG, 3 WEEKS AS A CYCLE, CONTINUOUS FOR 6 CYCLES
     Route: 041
  4. DEXAMETHASONE. [Concomitant]
     Active Substance: DEXAMETHASONE
     Dosage: BEFORE 3 DAYS OF ADMINISTRATION
     Route: 030
  5. PARACETAMOL [Concomitant]
     Active Substance: ACETAMINOPHEN
     Indication: HYPERSENSITIVITY
  6. CIMETIDINE [Concomitant]
     Active Substance: CIMETIDINE
     Indication: GASTROINTESTINAL DISORDER
     Dosage: BEFORE 3 DAYS OF ADMINISTRATION
     Route: 048
  7. GEMCITABINE. [Suspect]
     Active Substance: GEMCITABINE
     Indication: HER-2 POSITIVE BREAST CANCER
     Dosage: INTRAVENOUS DRIP FOR ONCE HOUR, ADMINISTRATION ON DAY 1 AND DAY 8 OF THE CYCLE, 3 WEEKS AS A CYCLE,
     Route: 041

REACTIONS (3)
  - Renal impairment [Unknown]
  - Liver injury [Unknown]
  - Bone marrow failure [Unknown]
